FAERS Safety Report 15001056 (Version 2)
Quarter: 2018Q2

REPORT INFORMATION
  Report Type: Spontaneous
  Country: US (occurrence: US)
  Receive Date: 20180612
  Receipt Date: 20180629
  Transmission Date: 20180711
  Serious: Yes (Other)
  Sender: FDA-Public Use
  Company Number: US-AKORN PHARMACEUTICALS-2018AKN00811

PATIENT
  Age: 14 Year
  Sex: Female
  Weight: 52.15 kg

DRUGS (1)
  1. MYORISAN [Suspect]
     Active Substance: ISOTRETINOIN
     Indication: ACNE CYSTIC
     Dosage: 40 MG, 1X/DAY
     Route: 048
     Dates: start: 20180329, end: 20180531

REACTIONS (6)
  - Anxiety [Recovered/Resolved]
  - Post inflammatory pigmentation change [Unknown]
  - Dry skin [Unknown]
  - Scar [Unknown]
  - Feeling jittery [Recovered/Resolved]
  - Off label use [Recovered/Resolved]

NARRATIVE: CASE EVENT DATE: 2018
